FAERS Safety Report 20486593 (Version 2)
Quarter: 2022Q2

REPORT INFORMATION
  Report Type: Report from Study
  Country: FR (occurrence: FR)
  Receive Date: 20220217
  Receipt Date: 20220407
  Transmission Date: 20220721
  Serious: Yes (Hospitalization, Other)
  Sender: FDA-Public Use
  Company Number: FR-BRISTOL-MYERS SQUIBB COMPANY-BMS-2022-020775

PATIENT
  Age: 41 Year
  Sex: Male
  Weight: 72 kg

DRUGS (4)
  1. APIXABAN [Suspect]
     Active Substance: APIXABAN
     Indication: Embolism venous
     Dosage: 5MG TWICE ADAYOR 2.5 MG TWICE A DAY ACCORDING TO THE RANDOMIZATION GROUP
     Route: 048
     Dates: start: 20210429, end: 20220125
  2. ENOXAPARIN SODIUM [Concomitant]
     Active Substance: ENOXAPARIN SODIUM
     Indication: Prophylaxis
     Dosage: 4000 INTERNATIONAL UNIT DAILY
     Route: 058
     Dates: start: 20220126, end: 20220201
  3. KEPPRA [Concomitant]
     Active Substance: LEVETIRACETAM
     Indication: Seizure prophylaxis
     Dosage: 1 GRAM DAILY
     Route: 048
     Dates: start: 20220125
  4. DEXAMETHASONE [Concomitant]
     Active Substance: DEXAMETHASONE
     Indication: Brain oedema
     Dosage: 6 MILLIGRAM DAILY
     Route: 048
     Dates: start: 20220125

REACTIONS (2)
  - Hepatic enzyme increased [Not Recovered/Not Resolved]
  - Gastroenteritis rotavirus [Not Recovered/Not Resolved]

NARRATIVE: CASE EVENT DATE: 20210501
